FAERS Safety Report 12303080 (Version 1)
Quarter: 2016Q2

REPORT INFORMATION
  Report Type: Spontaneous
  Country: US (occurrence: US)
  Receive Date: 20160426
  Receipt Date: 20160426
  Transmission Date: 20160815
  Serious: No
  Sender: FDA-Public Use
  Company Number: US-JNJFOC-20150927780

PATIENT
  Age: 7 Year
  Sex: Male

DRUGS (5)
  1. RISPERDAL [Suspect]
     Active Substance: RISPERIDONE
     Indication: MANIA
     Route: 048
     Dates: start: 20020528, end: 20030208
  2. RISPERDAL [Suspect]
     Active Substance: RISPERIDONE
     Indication: MANIA
     Route: 048
     Dates: start: 20050128, end: 20080915
  3. RISPERDAL [Suspect]
     Active Substance: RISPERIDONE
     Indication: MANIA
     Route: 048
     Dates: start: 20040905, end: 20050128
  4. INVEGA [Suspect]
     Active Substance: PALIPERIDONE
     Indication: MANIA
     Route: 048
     Dates: start: 200903
  5. RISPERDAL [Suspect]
     Active Substance: RISPERIDONE
     Indication: MANIA
     Route: 048
     Dates: start: 20030511, end: 20040805

REACTIONS (4)
  - Abnormal weight gain [Unknown]
  - Product use issue [Unknown]
  - Off label use [Unknown]
  - Gynaecomastia [Unknown]

NARRATIVE: CASE EVENT DATE: 20020528
